FAERS Safety Report 8451965-2 (Version None)
Quarter: 2012Q2

REPORT INFORMATION
  Report Type: 
  Country: None (occurrence: None)
  Receive Date: 20120620
  Receipt Date: 20120501
  Transmission Date: 20120825
  Serious: No
  Sender: FDA-Public Use
  Company Number: US-VERTEX PHARMACEUTICALS INC.-AE-2012-004410

PATIENT
  Sex: Female
  Weight: 67.646 kg

DRUGS (6)
  1. RIBAVIRIN [Concomitant]
     Indication: HEPATITIS C
     Route: 048
     Dates: start: 20120210
  2. PEGASYS [Concomitant]
     Indication: HEPATITIS C
     Route: 058
     Dates: start: 20120210
  3. XANAX [Concomitant]
  4. AMBIEN [Concomitant]
  5. INCIVEK [Suspect]
     Indication: HEPATITIS C
     Route: 048
     Dates: start: 20120210
  6. VILIBRYD [Concomitant]
     Indication: DEPRESSION

REACTIONS (13)
  - STOMATITIS [None]
  - RASH [None]
  - RASH PAPULAR [None]
  - PYREXIA [None]
  - ANORECTAL DISCOMFORT [None]
  - OEDEMA PERIPHERAL [None]
  - INAPPROPRIATE SCHEDULE OF DRUG ADMINISTRATION [None]
  - NASAL ULCER [None]
  - NAUSEA [None]
  - DIARRHOEA [None]
  - SWOLLEN TONGUE [None]
  - OROPHARYNGEAL PAIN [None]
  - BLISTER [None]
